FAERS Safety Report 4532095-9 (Version None)
Quarter: 2004Q4

REPORT INFORMATION
  Report Type: 
  Country: None (occurrence: None)
  Receive Date: 20041217
  Receipt Date: 20041210
  Transmission Date: 20050328
  Serious: Yes (Death)
  Sender: FDA-Public Use
  Company Number: 2004AP06222

PATIENT
  Age: 76 Year
  Sex: Male

DRUGS (8)
  1. IRESSA [Suspect]
     Indication: LUNG NEOPLASM MALIGNANT
     Dosage: 250 MG QOD PO
     Route: 048
     Dates: start: 20041202, end: 20041204
  2. URSO 250 [Concomitant]
  3. HERBESSER ^DELTA^ [Concomitant]
  4. ASPIRIN [Concomitant]
  5. MORPHINE [Concomitant]
  6. RADIOTHERAPY [Concomitant]
  7. CARBOPLATIN [Concomitant]
  8. VINORELBINE [Concomitant]

REACTIONS (4)
  - DISSEMINATED INTRAVASCULAR COAGULATION [None]
  - HAEMORRHAGE [None]
  - INTERSTITIAL LUNG DISEASE [None]
  - PYREXIA [None]
